FAERS Safety Report 7392312-7 (Version None)
Quarter: 2011Q1

REPORT INFORMATION
  Report Type: 
  Country: None (occurrence: None)
  Receive Date: 20110330
  Receipt Date: 20110330
  Transmission Date: 20110831
  Serious: Yes (Other)
  Sender: FDA-Public Use
  Company Number: None

PATIENT
  Sex: Male

DRUGS (3)
  1. ZY GENERIC [Concomitant]
  2. RISPERDONE (GEN) [Suspect]
     Indication: HEADACHE
     Dosage: ONE + ONE HALF TABS BEDTIME
  3. RISPERDONE (GEN) [Suspect]
     Indication: TIC
     Dosage: ONE + ONE HALF TABS BEDTIME

REACTIONS (4)
  - TIC [None]
  - VOMITING [None]
  - NAUSEA [None]
  - ABDOMINAL PAIN [None]
